FAERS Safety Report 16024443 (Version 1)
Quarter: 2019Q1

REPORT INFORMATION
  Report Type: Spontaneous
  Country: US (occurrence: US)
  Receive Date: 20190301
  Receipt Date: 20190301
  Transmission Date: 20190418
  Serious: Yes (Hospitalization, Other)
  Sender: FDA-Public Use
  Company Number: US-ASTRAZENECA-2019SE31119

PATIENT
  Sex: Male

DRUGS (22)
  1. FISH OIL [Concomitant]
     Active Substance: FISH OIL
     Dates: start: 20150910
  2. WARFARIN [Concomitant]
     Active Substance: WARFARIN
     Dates: start: 20161107
  3. ATORVASTATIN [Concomitant]
     Active Substance: ATORVASTATIN
     Dates: start: 20160831
  4. LISINOPRIL. [Concomitant]
     Active Substance: LISINOPRIL
     Dates: start: 20170628
  5. PAROXETINE. [Concomitant]
     Active Substance: PAROXETINE
     Dates: start: 20180105
  6. ENOXAPARIN SODIUM. [Concomitant]
     Active Substance: ENOXAPARIN SODIUM
     Dates: start: 20180608
  7. HYDROCHLOROTHIAZIDE. [Suspect]
     Active Substance: HYDROCHLOROTHIAZIDE
     Route: 065
  8. GLUCOSE [Concomitant]
     Active Substance: DEXTROSE
     Dates: start: 20171018
  9. METFORMIN [Concomitant]
     Active Substance: METFORMIN HYDROCHLORIDE
     Dates: start: 20151224
  10. ASPIRIN. [Concomitant]
     Active Substance: ASPIRIN
     Dates: start: 20160315
  11. LANSOPRAZOLE. [Concomitant]
     Active Substance: LANSOPRAZOLE
     Dates: start: 20160114
  12. MULTIVITAMIN [Concomitant]
     Active Substance: VITAMINS
     Dates: start: 20180205
  13. OMEPRAZOLE. [Suspect]
     Active Substance: OMEPRAZOLE
     Route: 048
  14. FUROSEMIDE. [Concomitant]
     Active Substance: FUROSEMIDE
     Dates: start: 20151122
  15. GABAPENTIN. [Concomitant]
     Active Substance: GABAPENTIN
     Dates: start: 20171024
  16. DULOXETINE. [Concomitant]
     Active Substance: DULOXETINE
     Dates: start: 20180511
  17. BENZOCAINE/MENTHOL [Concomitant]
     Dates: start: 20180521
  18. INSULIN ASPART [Concomitant]
     Active Substance: INSULIN ASPART
     Dates: start: 20170221
  19. INSULIN GLARGINE [Concomitant]
     Active Substance: INSULIN GLARGINE
     Dates: start: 20170203
  20. ACETAMINOPHEN. [Concomitant]
     Active Substance: ACETAMINOPHEN
     Dates: start: 20180523
  21. POLYVINYL ALCOHOL [Concomitant]
     Active Substance: POLYVINYL ALCOHOL
     Dates: start: 20180609
  22. CYCLOBENZAPRINE. [Concomitant]
     Active Substance: CYCLOBENZAPRINE
     Dates: start: 20180420

REACTIONS (6)
  - Sinus disorder [Unknown]
  - Chest pain [Unknown]
  - Hypersensitivity [Not Recovered/Not Resolved]
  - Blood glucose decreased [Unknown]
  - Nasal septum deviation [Recovered/Resolved]
  - Epistaxis [Unknown]

NARRATIVE: CASE EVENT DATE: 20180620
